FAERS Safety Report 13843037 (Version 1)
Quarter: 2017Q3

REPORT INFORMATION
  Report Type: Spontaneous
  Country: CN (occurrence: CN)
  Receive Date: 20170808
  Receipt Date: 20170808
  Transmission Date: 20171127
  Serious: Yes (Death, Other)
  Sender: FDA-Public Use
  Company Number: CN-009507513-1708CHN002499

PATIENT
  Age: 87 Year
  Sex: Female

DRUGS (1)
  1. TIENAM [Suspect]
     Active Substance: CILASTATIN SODIUM\IMIPENEM
     Dosage: 0.5 G
     Route: 041
     Dates: start: 20170717, end: 20170718

REACTIONS (1)
  - Drug hypersensitivity [Fatal]

NARRATIVE: CASE EVENT DATE: 20170717
